FAERS Safety Report 16083567 (Version 1)
Quarter: 2019Q1

REPORT INFORMATION
  Report Type: Spontaneous
  Country: US (occurrence: US)
  Receive Date: 20190318
  Receipt Date: 20190318
  Transmission Date: 20190418
  Serious: Yes (Other)
  Sender: FDA-Public Use
  Company Number: US-MYLANLABS-2019M1023301

PATIENT
  Age: 61 Year
  Sex: Female
  Weight: 63 kg

DRUGS (14)
  1. BACLOFEN. [Suspect]
     Active Substance: BACLOFEN
     Indication: PROGRESSIVE MULTIPLE SCLEROSIS
     Dosage: IN FIVE 20 MG DOSES STARTING AT 04:00 HOURS IN THE MORNING AND AGAIN EVERY 4 HOURS
     Route: 048
  2. BACLOFEN. [Suspect]
     Active Substance: BACLOFEN
     Dosage: TEST DOSE
     Route: 037
  3. CLONAZEPAM. [Suspect]
     Active Substance: CLONAZEPAM
     Indication: PROGRESSIVE MULTIPLE SCLEROSIS
     Dosage: AT BEDTIME
     Route: 065
  4. KETAMINE [Concomitant]
     Active Substance: KETAMINE
     Indication: MAINTENANCE OF ANAESTHESIA
     Dosage: ROUTE: INFUSION
     Route: 050
  5. DEXMEDETOMIDINE. [Concomitant]
     Active Substance: DEXMEDETOMIDINE
     Dosage: ROUTE: INFUSION
     Route: 050
  6. MYCOPHENOLATE MOFETIL. [Suspect]
     Active Substance: MYCOPHENOLATE MOFETIL
     Indication: PROGRESSIVE MULTIPLE SCLEROSIS
     Route: 048
  7. ARMODAFINIL. [Concomitant]
     Active Substance: ARMODAFINIL
     Indication: PROGRESSIVE MULTIPLE SCLEROSIS
     Route: 065
  8. HYDROCODONE [Concomitant]
     Active Substance: HYDROCODONE
     Indication: PROGRESSIVE MULTIPLE SCLEROSIS
     Route: 065
  9. ACETAMINOPHEN. [Concomitant]
     Active Substance: ACETAMINOPHEN
     Indication: MAINTENANCE OF ANAESTHESIA
     Dosage: 1 GRAM
     Route: 042
  10. FENTANYL. [Concomitant]
     Active Substance: FENTANYL
     Indication: MAINTENANCE OF ANAESTHESIA
     Dosage: ROUTE: INFUSION; AT 1-2 MICROG/KG/H SUPPLEMENTED WITH INTERMITTENT BOLUSES BASED ON THE DEGREE OF...
     Route: 050
  11. ACETAMINOPHEN. [Concomitant]
     Active Substance: ACETAMINOPHEN
     Indication: PROGRESSIVE MULTIPLE SCLEROSIS
     Dosage: 325 MILLIGRAM
     Route: 065
  12. METHYLPREDNISOLONE. [Suspect]
     Active Substance: METHYLPREDNISOLONE
     Indication: PROGRESSIVE MULTIPLE SCLEROSIS
     Route: 042
  13. DEXMEDETOMIDINE. [Concomitant]
     Active Substance: DEXMEDETOMIDINE
     Indication: MAINTENANCE OF ANAESTHESIA
     Dosage: ROUTE: INFUSION; TITRATED DOWN TO 0.3 MICROG/KG/H
     Route: 050
  14. SOLIFENACIN [Concomitant]
     Active Substance: SOLIFENACIN
     Indication: PROGRESSIVE MULTIPLE SCLEROSIS
     Route: 065

REACTIONS (2)
  - Fatigue [Unknown]
  - Muscular weakness [Unknown]
